FAERS Safety Report 19115210 (Version 3)
Quarter: 2021Q2

REPORT INFORMATION
  Report Type: Report from Study
  Country: US (occurrence: US)
  Receive Date: 20210408
  Receipt Date: 20210601
  Transmission Date: 20210717
  Serious: Yes (Hospitalization, Other)
  Sender: FDA-Public Use
  Company Number: US-BEH-2021130166

PATIENT
  Age: 47 Year
  Sex: Female
  Weight: 99.77 kg

DRUGS (3)
  1. HIZENTRA [Suspect]
     Active Substance: HUMAN IMMUNOGLOBULIN G
     Dosage: 40 GRAM, QW
     Route: 058
     Dates: start: 20201201
  2. HUMAN IMMUNOGLOBULIN (INN) [Suspect]
     Active Substance: HUMAN IMMUNOGLOBULIN G
     Route: 065
  3. HIZENTRA [Suspect]
     Active Substance: HUMAN IMMUNOGLOBULIN G
     Indication: CHRONIC INFLAMMATORY DEMYELINATING POLYRADICULONEUROPATHY
     Dosage: 40 GRAM, QW
     Route: 058
     Dates: start: 20210307, end: 20210307

REACTIONS (8)
  - Mental disorder [Unknown]
  - Fatigue [Recovered/Resolved]
  - Injection site bruising [Unknown]
  - Infusion site induration [Unknown]
  - Throat tightness [Recovered/Resolved]
  - Throat tightness [Unknown]
  - Infusion site erythema [Unknown]
  - Fatigue [Unknown]

NARRATIVE: CASE EVENT DATE: 20210307
